FAERS Safety Report 21355389 (Version 1)
Quarter: 2022Q3

REPORT INFORMATION
  Report Type: Spontaneous
  Country: US (occurrence: None)
  Receive Date: 20220920
  Receipt Date: 20220920
  Transmission Date: 20221027
  Serious: No
  Sender: FDA-Public Use
  Company Number: None

PATIENT
  Sex: 0

DRUGS (2)
  1. ARMOUR THYROID [Suspect]
     Active Substance: THYROID, PORCINE
  2. SYNTHROID [Suspect]
     Active Substance: LEVOTHYROXINE SODIUM

REACTIONS (1)
  - Therapy non-responder [None]
